FAERS Safety Report 7408951-0 (Version None)
Quarter: 2011Q2

REPORT INFORMATION
  Report Type: 
  Country: None (occurrence: None)
  Receive Date: 20110412
  Receipt Date: 20110225
  Transmission Date: 20111010
  Serious: Yes (Other)
  Sender: FDA-Public Use
  Company Number: US-SANOFI-AVENTIS-2011SA012455

PATIENT
  Age: 71 Year
  Sex: Female
  Weight: 77 kg

DRUGS (9)
  1. LANTUS [Suspect]
     Route: 058
     Dates: end: 20110224
  2. NITROGLYCERIN [Concomitant]
     Route: 065
  3. ASPIRIN [Concomitant]
     Route: 065
  4. OPTICLICK [Suspect]
     Dates: end: 20110224
  5. SPIRONO [Concomitant]
     Route: 065
  6. SIMVASTATIN [Concomitant]
     Route: 065
  7. EVISTA [Concomitant]
     Route: 065
  8. NOVOLOG [Concomitant]
     Dosage: 10UNITS WITH BREAKFAST, 16 UNITS WITH LUNCH AND 22 WITH DINNER
  9. NEBIVOLOL HCL [Concomitant]
     Route: 065

REACTIONS (5)
  - MACULAR DEGENERATION [None]
  - HEARING IMPAIRED [None]
  - CATARACT OPERATION [None]
  - BREAST CANCER [None]
  - STENT PLACEMENT [None]
